FAERS Safety Report 25476116 (Version 1)
Quarter: 2025Q2

REPORT INFORMATION
  Report Type: Report from Study
  Country: JP (occurrence: JP)
  Receive Date: 20250625
  Receipt Date: 20250625
  Transmission Date: 20250717
  Serious: Yes (Hospitalization, Other)
  Sender: CHIESI
  Company Number: JP-AMRYT PHARMACEUTICALS DAC-AEGR005401

PATIENT
  Age: 77 Year
  Sex: Female
  Weight: 56 kg

DRUGS (30)
  1. LOMITAPIDE [Suspect]
     Active Substance: LOMITAPIDE
     Indication: Type IIa hyperlipidaemia
     Dosage: 5 MILLIGRAM, QD
     Route: 048
     Dates: start: 20210528, end: 20210729
  2. LOMITAPIDE [Suspect]
     Active Substance: LOMITAPIDE
     Dosage: 15 MILLIGRAM, QD
     Route: 048
     Dates: start: 20210730
  3. ATORVASTATIN [Concomitant]
     Active Substance: ATORVASTATIN
     Indication: Hypercholesterolaemia
     Dosage: 10 MILLIGRAM, BID
     Route: 048
  4. ATORVASTATIN [Concomitant]
     Active Substance: ATORVASTATIN
     Dosage: 20 MILLIGRAM, BID
  5. ATORVASTATIN CALCIUM\EZETIMIBE [Concomitant]
     Active Substance: ATORVASTATIN CALCIUM\EZETIMIBE
     Indication: Hypercholesterolaemia
     Dosage: 1 DOSAGE FORM, QD
     Route: 048
  6. SINLESTAL [Concomitant]
     Indication: Hypercholesterolaemia
     Dosage: 1000 MILLIGRAM, QD
     Route: 048
     Dates: end: 20241024
  7. REPATHA [Concomitant]
     Active Substance: EVOLOCUMAB
     Indication: Hypercholesterolaemia
     Dosage: 420 MILLIGRAM, QOW
     Route: 058
  8. REPATHA [Concomitant]
     Active Substance: EVOLOCUMAB
  9. BISOPROLOL FUMARATE [Concomitant]
     Active Substance: BISOPROLOL FUMARATE
     Indication: Hypertension
     Dosage: 2.5 MILLIGRAM, QD
     Route: 048
  10. MAGNESIUM OXIDE [Concomitant]
     Active Substance: MAGNESIUM OXIDE
     Indication: Constipation
     Dosage: 330 MILLIGRAM, QD
     Route: 048
  11. LASIX [Concomitant]
     Active Substance: FUROSEMIDE
     Indication: Cardiac failure congestive
     Dosage: 40 MILLIGRAM, QD
     Route: 048
  12. NICORANDIL [Concomitant]
     Active Substance: NICORANDIL
     Indication: Angina pectoris
     Dosage: 5 MILLIGRAM, BID
     Route: 048
  13. SAMSCA [Concomitant]
     Active Substance: TOLVAPTAN
     Indication: Cardiac failure congestive
     Dosage: 7.5 MILLIGRAM, BID
     Route: 048
  14. SAMSCA [Concomitant]
     Active Substance: TOLVAPTAN
     Dosage: 15 MILLIGRAM, QD
  15. PLAVIX [Concomitant]
     Active Substance: CLOPIDOGREL BISULFATE
     Indication: Coronary angioplasty
     Dosage: 75 MILLIGRAM, QD
     Route: 048
  16. AZOSEMIDE [Concomitant]
     Active Substance: AZOSEMIDE
     Indication: Cardiac failure congestive
     Dosage: 30 MILLIGRAM, QD
     Route: 048
  17. CANAGLIFLOZIN\TENELIGLIPTIN [Concomitant]
     Active Substance: CANAGLIFLOZIN\TENELIGLIPTIN
     Indication: Diabetes mellitus
     Dosage: 1 DOSAGE FORM, QD
     Route: 048
  18. AMLODIPINE BESYLATE\AZILSARTAN [Concomitant]
     Active Substance: AMLODIPINE BESYLATE\AZILSARTAN
     Indication: Hypertension
     Dosage: 1 DOSAGE FORM, QD
     Route: 048
  19. SULFASALAZINE [Concomitant]
     Active Substance: SULFASALAZINE
     Indication: Colitis ulcerative
     Dosage: 500 MILLIGRAM, BID
     Route: 048
  20. ADALAT [Concomitant]
     Active Substance: NIFEDIPINE
     Indication: Angina pectoris
     Dosage: 20 MILLIGRAM, Q12H
     Route: 048
  21. ADALAT [Concomitant]
     Active Substance: NIFEDIPINE
     Indication: Hypertension
  22. POLAPREZINC [Concomitant]
     Active Substance: POLAPREZINC
     Indication: Colitis ulcerative
     Dosage: 75 MILLIGRAM, BID
     Route: 048
     Dates: start: 20210812
  23. RABEPRAZOLE SODIUM [Concomitant]
     Active Substance: RABEPRAZOLE SODIUM
     Indication: Prophylaxis
     Dosage: 10 MILLIGRAM, QD
     Route: 048
  24. NOVORAPID [Concomitant]
     Active Substance: INSULIN ASPART
     Indication: Diabetes mellitus
     Dosage: 3 INTERNATIONAL UNIT, Q12H
     Route: 058
  25. SODIUM FERROUS CITRATE [Concomitant]
     Active Substance: SODIUM FERROUS CITRATE
     Indication: Iron deficiency anaemia
     Dosage: 50 MILLIGRAM, QD
     Route: 048
  26. LINZESS [Concomitant]
     Active Substance: LINACLOTIDE
     Indication: Constipation
     Dosage: 0.25 MILLIGRAM, QD
     Dates: start: 20220603, end: 20230104
  27. CALCIUM POLYSTYRENE SULFONATE [Concomitant]
     Active Substance: CALCIUM POLYSTYRENE SULFONATE
     Indication: Chronic kidney disease
     Dosage: 25 GRAM, QOD
     Route: 048
     Dates: end: 20230109
  28. LOKELMA [Concomitant]
     Active Substance: SODIUM ZIRCONIUM CYCLOSILICATE
     Indication: Chronic kidney disease
     Dosage: UNK UNK, QOD
     Route: 048
     Dates: start: 20230110
  29. CLOPIDOGREL [Concomitant]
     Active Substance: CLOPIDOGREL BISULFATE
     Indication: Product used for unknown indication
     Dosage: 75 MILLIGRAM, QD
     Route: 048
     Dates: end: 20230622
  30. EVINACUMAB [Concomitant]
     Active Substance: EVINACUMAB
     Indication: Product used for unknown indication
     Dates: start: 202405

REACTIONS (7)
  - Diverticulum intestinal haemorrhagic [Recovered/Resolved]
  - Diverticulum intestinal haemorrhagic [Recovered/Resolved]
  - Diverticulum intestinal haemorrhagic [Recovered/Resolved]
  - Diverticulum intestinal haemorrhagic [Recovered/Resolved]
  - Cardiac failure congestive [Recovering/Resolving]
  - Cardiac failure congestive [Recovering/Resolving]
  - Atrial fibrillation [Not Recovered/Not Resolved]

NARRATIVE: CASE EVENT DATE: 20211003
